FAERS Safety Report 7617148-0 (Version None)
Quarter: 2011Q3

REPORT INFORMATION
  Report Type: 
  Country: None (occurrence: None)
  Receive Date: 20110718
  Receipt Date: 20110708
  Transmission Date: 20111222
  Serious: Yes (Hospitalization, Other)
  Sender: FDA-Public Use
  Company Number: US-BAYER-2011-003216

PATIENT
  Age: 17 Year
  Sex: Female
  Weight: 48 kg

DRUGS (7)
  1. NAPROXEN [Concomitant]
     Dosage: UNK
     Dates: start: 20080101
  2. YASMIN [Suspect]
     Indication: CONTRACEPTION
     Dosage: UNK
  3. RESTORIL [Concomitant]
  4. DROSPIRENONE AND ETHINYL ESTRADIOL [Suspect]
     Indication: CONTRACEPTION
     Dosage: UNK
  5. DROSPIRENONE AND ETHINYL ESTRADIOL [Suspect]
     Indication: UTERINE DISORDER
  6. MIRALAX [Concomitant]
  7. YASMIN [Suspect]
     Indication: UTERINE DISORDER

REACTIONS (3)
  - CHOLECYSTITIS [None]
  - CHOLELITHIASIS [None]
  - GALLBLADDER INJURY [None]
